FAERS Safety Report 16269775 (Version 5)
Quarter: 2021Q1

REPORT INFORMATION
  Report Type: Spontaneous
  Country: US (occurrence: US)
  Receive Date: 20190503
  Receipt Date: 20210310
  Transmission Date: 20210419
  Serious: No
  Sender: FDA-Public Use
  Company Number: US-PFIZER INC-2018142214

PATIENT
  Age: 54 Year
  Sex: Female

DRUGS (1)
  1. LYRICA [Suspect]
     Active Substance: PREGABALIN
     Indication: SCOLIOSIS
     Dosage: 200 MG, 2X/DAY (TAKE 1 CAP TWO TIMES A DAY)
     Route: 048

REACTIONS (4)
  - Arthralgia [Unknown]
  - Off label use [Unknown]
  - Product use in unapproved indication [Unknown]
  - Nasopharyngitis [Unknown]
